FAERS Safety Report 17994861 (Version 1)
Quarter: 2020Q3

REPORT INFORMATION
  Report Type: Spontaneous
  Country: FR (occurrence: FR)
  Receive Date: 20200708
  Receipt Date: 20200708
  Transmission Date: 20201103
  Serious: Yes (Death, Other)
  Sender: FDA-Public Use
  Company Number: FR-MYLANLABS-2008S1004205

PATIENT
  Age: 45 Year
  Sex: Female

DRUGS (1)
  1. MINOCYCLINE [Suspect]
     Active Substance: MINOCYCLINE HYDROCHLORIDE
     Indication: ACNE
     Dosage: UNK

REACTIONS (10)
  - Pulmonary function test abnormal [Fatal]
  - Hepatic function abnormal [Fatal]
  - Drug reaction with eosinophilia and systemic symptoms [Fatal]
  - Pyrexia [Fatal]
  - Renal impairment [Fatal]
  - Face oedema [Fatal]
  - Lymphadenopathy [Fatal]
  - Rash [Fatal]
  - Pigmentation disorder [Fatal]
  - Cardiac dysfunction [Fatal]
